FAERS Safety Report 17837097 (Version 1)
Quarter: 2020Q2

REPORT INFORMATION
  Report Type: Other
  Country: US (occurrence: US)
  Receive Date: 20200528
  Receipt Date: 20200528
  Transmission Date: 20200714
  Serious: No
  Sender: FDA-Public Use
  Company Number: US-BIOVITRUM-2019US1354

PATIENT
  Sex: Female

DRUGS (1)
  1. KINERET [Suspect]
     Active Substance: ANAKINRA
     Indication: CHONDROCALCINOSIS PYROPHOSPHATE
     Route: 058
     Dates: start: 20190313

REACTIONS (5)
  - Memory impairment [Unknown]
  - Contusion [Unknown]
  - Pain in extremity [Unknown]
  - Hip arthroplasty [Unknown]
  - Off label use [Unknown]
